FAERS Safety Report 16844550 (Version 3)
Quarter: 2020Q2

REPORT INFORMATION
  Report Type: Report from Study
  Country: US (occurrence: US)
  Receive Date: 20190924
  Receipt Date: 20200501
  Transmission Date: 20200713
  Serious: Yes (Hospitalization, Other)
  Sender: FDA-Public Use
  Company Number: US-ROCHE-2410421

PATIENT
  Age: 58 Year
  Sex: Female
  Weight: 77.18 kg

DRUGS (3)
  1. OXYBUTYNIN. [Concomitant]
     Active Substance: OXYBUTYNIN CHLORIDE
     Indication: HYPERTONIC BLADDER
     Route: 048
     Dates: start: 201902
  2. OCRELIZUMAB. [Suspect]
     Active Substance: OCRELIZUMAB
     Route: 042
     Dates: start: 20190424
  3. OCRELIZUMAB. [Suspect]
     Active Substance: OCRELIZUMAB
     Indication: PRIMARY PROGRESSIVE MULTIPLE SCLEROSIS
     Route: 042
     Dates: start: 20190410

REACTIONS (19)
  - Urinary tract infection [Not Recovered/Not Resolved]
  - Balance disorder [Not Recovered/Not Resolved]
  - Hip fracture [Recovered/Resolved]
  - Alopecia [Not Recovered/Not Resolved]
  - Feeling hot [Recovered/Resolved]
  - Impaired driving ability [Not Recovered/Not Resolved]
  - Urinary incontinence [Not Recovered/Not Resolved]
  - Head injury [Recovered/Resolved]
  - Concussion [Recovered/Resolved]
  - Vision blurred [Not Recovered/Not Resolved]
  - Tinnitus [Not Recovered/Not Resolved]
  - Pharyngeal swelling [Recovered/Resolved]
  - Eye discharge [Not Recovered/Not Resolved]
  - Fall [Unknown]
  - Multiple sclerosis relapse [Recovered/Resolved]
  - Rash macular [Recovered/Resolved]
  - Constipation [Not Recovered/Not Resolved]
  - Gait disturbance [Not Recovered/Not Resolved]
  - Multiple sclerosis relapse [Unknown]

NARRATIVE: CASE EVENT DATE: 20190410
